FAERS Safety Report 6313283 (Version 2)
Quarter: 2013Q2

REPORT INFORMATION
  Report Type: Spontaneous
  Country: BE (occurrence: None)
  Receive Date: 20070427
  Receipt Date: 20130409
  Transmission Date: 20140414
  Serious: Yes (Hospitalization)
  Sender: FDA-Public Use
  Company Number: 2007US-06879

PATIENT
  Age: 56 Year
  Sex: Female

DRUGS (1)
  1. PSEUDOEPHEDRINE [Suspect]
     Indication: RHINITIS ALLERGIC

REACTIONS (7)
  - Mania [None]
  - Hypertension [None]
  - Blood sodium decreased [None]
  - Insomnia [None]
  - Somnolence [None]
  - Sinusitis [None]
  - Blood potassium decreased [None]
